FAERS Safety Report 4722942-X (Version None)
Quarter: 2005Q3

REPORT INFORMATION
  Report Type: 
  Country: None (occurrence: None)
  Receive Date: 20050709
  Receipt Date: 20040820
  Transmission Date: 20060218
  Serious: Yes (Hospitalization)
  Sender: FDA-Public Use
  Company Number: 2004231208US

PATIENT
  Age: 52 Year
  Sex: Male
  Weight: 157.8 kg

DRUGS (1)
  1. CELEBREX [Suspect]
     Indication: ARTHRITIS
     Dosage: 200 MG, QD
     Dates: start: 20000804

REACTIONS (1)
  - ACUTE MYOCARDIAL INFARCTION [None]
